FAERS Safety Report 7705583-1 (Version None)
Quarter: 2011Q3

REPORT INFORMATION
  Report Type: 
  Country: None (occurrence: None)
  Receive Date: 20110823
  Receipt Date: 20110823
  Transmission Date: 20111222
  Serious: Yes (Life-Threatening, Disabling)
  Sender: FDA-Public Use
  Company Number: None

PATIENT
  Sex: Female
  Weight: 90.7194 kg

DRUGS (2)
  1. ZETIA [Suspect]
  2. BYSTOLIC [Suspect]
     Indication: HYPERTENSION
     Dates: start: 20090101

REACTIONS (4)
  - VISUAL ACUITY REDUCED [None]
  - VISION BLURRED [None]
  - HEART RATE DECREASED [None]
  - BLOOD PRESSURE DECREASED [None]
